FAERS Safety Report 23050939 (Version 1)
Quarter: 2023Q4

REPORT INFORMATION
  Report Type: Spontaneous
  Country: SE (occurrence: SE)
  Receive Date: 20231010
  Receipt Date: 20231010
  Transmission Date: 20240109
  Serious: Yes (Other)
  Sender: FDA-Public Use
  Company Number: None

PATIENT
  Age: 9 Year
  Sex: Male
  Weight: 27 kg

DRUGS (2)
  1. EBASTINE [Suspect]
     Active Substance: EBASTINE
     Indication: Seasonal allergy
     Dosage: 5 ML/DAY
     Route: 048
     Dates: start: 20230329
  2. BUDESONIDE [Concomitant]
     Active Substance: BUDESONIDE
     Dosage: 1 INHALATION/DAY
     Dates: start: 20220201

REACTIONS (5)
  - Dissociation [Unknown]
  - Poor quality sleep [Not Recovered/Not Resolved]
  - Aggression [Unknown]
  - Anxiety [Unknown]
  - Suicidal ideation [Unknown]

NARRATIVE: CASE EVENT DATE: 20230330
